FAERS Safety Report 4503251-0 (Version None)
Quarter: 2004Q4

REPORT INFORMATION
  Report Type: 
  Country: None (occurrence: None)
  Receive Date: 20041112
  Receipt Date: 20041101
  Transmission Date: 20050328
  Serious: Yes (Other)
  Sender: FDA-Public Use
  Company Number: 2004086856

PATIENT
  Age: 61 Year
  Sex: Male
  Weight: 82 kg

DRUGS (6)
  1. AMLODIPINE [Suspect]
     Indication: BLOOD PRESSURE INCREASED
     Dosage: 5 MG, ORAL
     Route: 048
     Dates: start: 20040730, end: 20040809
  2. INSULIN HUMAN (INSULIN HUMAN) [Concomitant]
  3. INSULIN GLARGINE (INSULIN GLARGINE) [Concomitant]
  4. ASPIRIN [Concomitant]
  5. SIMVASTATIN [Concomitant]
  6. AMLODIPINE BESYLATE [Concomitant]

REACTIONS (2)
  - OEDEMA [None]
  - WHEEZING [None]
